FAERS Safety Report 15066682 (Version 7)
Quarter: 2018Q4

REPORT INFORMATION
  Report Type: Spontaneous
  Country: JP (occurrence: JP)
  Receive Date: 20180626
  Receipt Date: 20181108
  Transmission Date: 20190204
  Serious: Yes (Death, Hospitalization, Disabling, Other)
  Sender: FDA-Public Use
  Company Number: JP-009507513-1806JPN000394J

PATIENT
  Age: 78 Year
  Sex: Female
  Weight: 45 kg

DRUGS (1)
  1. KEYTRUDA [Suspect]
     Active Substance: PEMBROLIZUMAB
     Indication: BLADDER TRANSITIONAL CELL CARCINOMA STAGE II
     Dosage: 200 MG, Q3W
     Route: 041
     Dates: start: 20180427, end: 20180427

REACTIONS (9)
  - Aspergillus infection [Fatal]
  - Suture rupture [Recovering/Resolving]
  - Aplastic anaemia [Recovering/Resolving]
  - Hyperthyroidism [Recovered/Resolved]
  - Skin necrosis [Unknown]
  - Hypothyroidism [Not Recovered/Not Resolved]
  - Oral candidiasis [Recovering/Resolving]
  - Cellulitis [Not Recovered/Not Resolved]
  - Pneumonia fungal [Not Recovered/Not Resolved]

NARRATIVE: CASE EVENT DATE: 20180518
